FAERS Safety Report 16078365 (Version 2)
Quarter: 2019Q2

REPORT INFORMATION
  Report Type: Report from Study
  Country: CO (occurrence: CO)
  Receive Date: 20190315
  Receipt Date: 20190412
  Transmission Date: 20190711
  Serious: Yes (Hospitalization)
  Sender: FDA-Public Use
  Company Number: PHHY2019CO057487

PATIENT
  Age: 60 Year
  Sex: Female
  Weight: 72 kg

DRUGS (1)
  1. COSENTYX [Suspect]
     Active Substance: SECUKINUMAB
     Indication: ANKYLOSING SPONDYLITIS
     Dosage: 150 MG, QMO
     Route: 058
     Dates: start: 20181128

REACTIONS (3)
  - Urinary tract infection bacterial [Recovering/Resolving]
  - Kidney infection [Recovering/Resolving]
  - Cystitis bacterial [Recovering/Resolving]

NARRATIVE: CASE EVENT DATE: 20190131
